FAERS Safety Report 9380012 (Version 1)
Quarter: 2013Q2

REPORT INFORMATION
  Report Type: Spontaneous
  Country: US (occurrence: None)
  Receive Date: 20130627
  Receipt Date: 20130627
  Transmission Date: 20140414
  Serious: Yes (Other)
  Sender: FDA-Public Use
  Company Number: SYM-2013-05087

PATIENT
  Age: 6 Decade
  Sex: Male

DRUGS (3)
  1. WELLBUTRIN XL [Suspect]
     Indication: DEPRESSION
  2. WELLBUTRIN XL [Suspect]
     Indication: FATIGUE
  3. LIPITOR (ATORVASTATIN CALCIUM) [Suspect]

REACTIONS (2)
  - Pancytopenia [None]
  - Anaemia megaloblastic [None]
